FAERS Safety Report 9238609 (Version 1)
Quarter: 2013Q2

REPORT INFORMATION
  Report Type: Spontaneous
  Country: US (occurrence: None)
  Receive Date: 20130418
  Receipt Date: 20130418
  Transmission Date: 20140414
  Serious: Yes (Death)
  Sender: FDA-Public Use
  Company Number: None

PATIENT
  Age: 51 Year
  Sex: Female
  Weight: 104.5 kg

DRUGS (3)
  1. OMONTYS [Suspect]
     Indication: ANAEMIA
     Dosage: 10 MG EVERY 4 WEEKS IVP
     Dates: start: 20130121
  2. OMONTYS [Suspect]
     Indication: RENAL FAILURE CHRONIC
     Dosage: 10 MG EVERY 4 WEEKS IVP
     Dates: start: 20130121
  3. HEPARIN [Concomitant]

REACTIONS (4)
  - Blood pressure decreased [None]
  - Pulse absent [None]
  - Unresponsive to stimuli [None]
  - Infusion site extravasation [None]
